FAERS Safety Report 15282818 (Version 1)
Quarter: 2018Q3

REPORT INFORMATION
  Report Type: Report from Study
  Country: JP (occurrence: JP)
  Receive Date: 20180816
  Receipt Date: 20180816
  Transmission Date: 20181010
  Serious: Yes (Disabling, Other)
  Sender: FDA-Public Use
  Company Number: JP-ROCHE-GNE307522

PATIENT
  Age: 62 Year
  Sex: Male

DRUGS (8)
  1. RANIBIZUMAB. [Suspect]
     Active Substance: RANIBIZUMAB
     Dosage: 0.05 ML, UNK
     Route: 050
     Dates: start: 20090722
  2. VIGAMOX [Concomitant]
     Active Substance: MOXIFLOXACIN HYDROCHLORIDE
     Indication: PRODUCT USED FOR UNKNOWN INDICATION
     Dosage: UNK
     Route: 065
     Dates: start: 200907, end: 200911
  3. RANIBIZUMAB. [Suspect]
     Active Substance: RANIBIZUMAB
     Dosage: 0.05 ML, UNK
     Route: 050
     Dates: start: 20091006
  4. RANIBIZUMAB. [Suspect]
     Active Substance: RANIBIZUMAB
     Dosage: 0.05 ML, UNK
     Route: 050
     Dates: start: 20091104
  5. RANIBIZUMAB. [Suspect]
     Active Substance: RANIBIZUMAB
     Indication: AGE-RELATED MACULAR DEGENERATION
     Dosage: 0.05 ML, UNK
     Route: 050
     Dates: start: 20090427
  6. RANIBIZUMAB. [Suspect]
     Active Substance: RANIBIZUMAB
     Dosage: 0.05 ML, UNK
     Route: 050
  7. RANIBIZUMAB. [Suspect]
     Active Substance: RANIBIZUMAB
     Dosage: 0.05 ML, UNK
     Route: 050
     Dates: start: 20090427
  8. RANIBIZUMAB. [Suspect]
     Active Substance: RANIBIZUMAB
     Dosage: 0.05 ML, UNK
     Route: 050
     Dates: start: 20090922

REACTIONS (2)
  - Retinal haemorrhage [Recovered/Resolved]
  - Visual acuity reduced [Recovered/Resolved]

NARRATIVE: CASE EVENT DATE: 20090820
